FAERS Safety Report 6291432-8 (Version None)
Quarter: 2009Q3

REPORT INFORMATION
  Report Type: 
  Country: None (occurrence: None)
  Receive Date: 20090730
  Receipt Date: 20090720
  Transmission Date: 20100115
  Serious: Yes (Death, Hospitalization)
  Sender: FDA-Public Use
  Company Number: AR-BRISTOL-MYERS SQUIBB COMPANY-14645477

PATIENT
  Age: 71 Year
  Sex: Female

DRUGS (6)
  1. APIXABAN [Suspect]
     Indication: THROMBOSIS PROPHYLAXIS
     Dosage: INTERRUPTED ON 28MAY09
     Route: 048
     Dates: start: 20080502, end: 20090528
  2. WARFARIN SODIUM [Suspect]
     Indication: THROMBOSIS PROPHYLAXIS
     Dosage: INTERRUPTED ON 28MAY09
     Route: 048
     Dates: start: 20080502, end: 20090528
  3. PLACEBO [Suspect]
     Indication: THROMBOSIS PROPHYLAXIS
     Dosage: INTERRUPTED ON 28MAY09
     Route: 048
     Dates: start: 20080502, end: 20090528
  4. ATENOLOL [Concomitant]
     Dates: start: 20070301
  5. ENALAPRIL MALEATE [Concomitant]
     Dates: start: 20030101
  6. CIPROFLOXACIN [Concomitant]
     Dates: start: 20090528, end: 20090604

REACTIONS (2)
  - CONFUSIONAL STATE [None]
  - ISCHAEMIC STROKE [None]
